FAERS Safety Report 9853498 (Version 1)
Quarter: 2014Q1

REPORT INFORMATION
  Report Type: Spontaneous
  Country: JP (occurrence: JP)
  Receive Date: 20140129
  Receipt Date: 20140129
  Transmission Date: 20141002
  Serious: Yes (Other)
  Sender: FDA-Public Use
  Company Number: JP-GLAXOSMITHKLINE-B0964090A

PATIENT
  Age: 8 Decade
  Sex: Male

DRUGS (3)
  1. RELVAR ELLIPTA (FLUTICASONE FUROATE/VILANTEROL) [Suspect]
     Indication: ASTHMA
     Dosage: 100IUAX PER DAY
     Route: 055
     Dates: start: 20140123, end: 20140124
  2. CODEINE PHOSPHATE [Suspect]
     Indication: ASTHMA
     Route: 048
     Dates: start: 20140123, end: 20140124
  3. HOKUNALIN [Concomitant]
     Indication: ASTHMA
     Route: 062
     Dates: start: 20140123, end: 20140124

REACTIONS (1)
  - Urinary retention [Unknown]
